FAERS Safety Report 13132086 (Version 1)
Quarter: 2017Q1

REPORT INFORMATION
  Report Type: Spontaneous
  Country: KR (occurrence: KR)
  Receive Date: 20170119
  Receipt Date: 20170119
  Transmission Date: 20170428
  Serious: Yes (Hospitalization, Other)
  Sender: FDA-Public Use
  Company Number: KR-BAUSCH-BL-2017-001046

PATIENT
  Age: 63 Year
  Sex: Male

DRUGS (4)
  1. PREDNISOLONE. [Suspect]
     Active Substance: PREDNISOLONE
     Indication: ENCAPSULATING PERITONEAL SCLEROSIS
     Route: 048
  2. PREDNISOLONE. [Suspect]
     Active Substance: PREDNISOLONE
     Indication: ENCAPSULATING PERITONEAL SCLEROSIS
     Route: 048
  3. CIPROFLOXACIN. [Concomitant]
     Active Substance: CIPROFLOXACIN
     Indication: PERITONITIS BACTERIAL
     Route: 042
  4. CEFOTAXIME [Concomitant]
     Active Substance: CEFOTAXIME SODIUM
     Indication: PERITONITIS BACTERIAL
     Route: 042

REACTIONS (1)
  - Disseminated cryptococcosis [Recovered/Resolved]
